FAERS Safety Report 10619323 (Version 4)
Quarter: 2015Q2

REPORT INFORMATION
  Report Type: Spontaneous
  Country: HU (occurrence: HU)
  Receive Date: 20141202
  Receipt Date: 20150410
  Transmission Date: 20150821
  Serious: Yes (Other)
  Sender: FDA-Public Use
  Company Number: HU-PFIZER INC-2014324694

PATIENT
  Age: 88 Year
  Sex: Female

DRUGS (1)
  1. CARDURA XL [Suspect]
     Active Substance: DOXAZOSIN MESYLATE
     Dosage: 1 DF, 2X/DAY (MORNING, EVENING)

REACTIONS (3)
  - Thrombosis [Unknown]
  - Blood pressure inadequately controlled [Unknown]
  - Malaise [Unknown]
